FAERS Safety Report 23224985 (Version 2)
Quarter: 2024Q1

REPORT INFORMATION
  Report Type: Other
  Country: GB (occurrence: None)
  Receive Date: 20231124
  Receipt Date: 20240331
  Transmission Date: 20240409
  Serious: Yes (Hospitalization)
  Sender: FDA-Public Use
  Company Number: GB-ROCHE-3191866

PATIENT
  Sex: Male

DRUGS (1)
  1. RISDIPLAM [Suspect]
     Active Substance: RISDIPLAM
     Indication: Product used for unknown indication
     Dosage: 0.75MG/ML 1 PER WEEK
     Route: 065
     Dates: start: 202012

REACTIONS (3)
  - Spinal disorder [Unknown]
  - Illness [Unknown]
  - Product dose omission issue [Unknown]
